FAERS Safety Report 26040441 (Version 1)
Quarter: 2025Q4

REPORT INFORMATION
  Report Type: Spontaneous
  Country: EU (occurrence: EU)
  Receive Date: 20251113
  Receipt Date: 20251113
  Transmission Date: 20260117
  Serious: Yes (Other)
  Sender: AMGEN
  Company Number: EU-AMGEN-AUTSP2025218472

PATIENT
  Age: 37 Year
  Sex: Male

DRUGS (5)
  1. NPLATE [Suspect]
     Active Substance: ROMIPLOSTIM
     Indication: Immune thrombocytopenia
     Dosage: 1 MICROGRAM/KILOGRAM, QWK
     Route: 058
     Dates: start: 202411
  2. NPLATE [Suspect]
     Active Substance: ROMIPLOSTIM
     Indication: Evans syndrome
     Dosage: 4-5 MICROGRAM/KILOGRAM BODY WEIGHT , QWK (SUBSEQUENTLY DOSE INCREASED)/
     Route: 058
  3. NPLATE [Suspect]
     Active Substance: ROMIPLOSTIM
     Indication: Haemolytic anaemia
  4. RITUXIMAB [Suspect]
     Active Substance: RITUXIMAB
     Indication: Autoimmune haemolytic anaemia
     Dosage: 375 MILLIGRAM/SQ. METER, QWK (4 DOSES)
     Route: 065
     Dates: start: 20250519
  5. Immunoglobulin [Concomitant]

REACTIONS (6)
  - Pulmonary sarcoidosis [Unknown]
  - Immune thrombocytopenia [Recovered/Resolved]
  - Autoimmune haemolytic anaemia [Unknown]
  - Liver function test increased [Not Recovered/Not Resolved]
  - Anxiety [Unknown]
  - Off label use [Unknown]

NARRATIVE: CASE EVENT DATE: 20241101
